FAERS Safety Report 5800610-0 (Version None)
Quarter: 2008Q3

REPORT INFORMATION
  Report Type: 
  Country: None (occurrence: None)
  Receive Date: 20080703
  Receipt Date: 20080624
  Transmission Date: 20090109
  Serious: Yes (Death)
  Sender: FDA-Public Use
  Company Number: US-BAXTER-2008BH006380

PATIENT
  Age: 76 Year
  Sex: Male
  Weight: 60 kg

DRUGS (5)
  1. ADVATE [Suspect]
     Indication: DRUG USE FOR UNKNOWN INDICATION
     Route: 042
  2. OMEPRAZOLE [Concomitant]
     Indication: GASTROOESOPHAGEAL REFLUX DISEASE
     Route: 048
  3. NEURONTIN [Concomitant]
     Indication: PAIN
     Route: 048
  4. MS SR [Concomitant]
     Indication: PAIN
     Route: 048
  5. ZOMETA [Concomitant]
     Indication: CHEMOTHERAPY
     Route: 042

REACTIONS (1)
  - SARCOMA [None]
